FAERS Safety Report 10066081 (Version 1)
Quarter: 2014Q2

REPORT INFORMATION
  Report Type: Spontaneous
  Country: US (occurrence: US)
  Receive Date: 20140408
  Receipt Date: 20140408
  Transmission Date: 20141212
  Serious: No
  Sender: FDA-Public Use
  Company Number: US-ASTELLAS-2014US000776

PATIENT
  Age: 82 Year
  Sex: Male

DRUGS (6)
  1. MYRBETRIQ [Suspect]
     Indication: PRODUCT USED FOR UNKNOWN INDICATION
     Dosage: 25 MG, UID/QD
     Route: 048
     Dates: start: 20140116
  2. MEDICATIONS [Concomitant]
     Indication: BLOOD PRESSURE
     Dosage: UNK
     Route: 065
  3. MEDICATIONS [Concomitant]
     Indication: CARDIAC DISORDER
  4. MEDICATIONS [Concomitant]
     Indication: BLOOD POTASSIUM
  5. MEDICATIONS [Concomitant]
     Indication: ARTHRITIS
  6. MEDICATIONS [Concomitant]
     Indication: BLOOD CALCIUM

REACTIONS (2)
  - Dysuria [Unknown]
  - Urine flow decreased [Unknown]
